FAERS Safety Report 8120231-7 (Version None)
Quarter: 2012Q1

REPORT INFORMATION
  Report Type: 
  Country: None (occurrence: None)
  Receive Date: 20120207
  Receipt Date: 20120131
  Transmission Date: 20120608
  Serious: Yes (Other)
  Sender: FDA-Public Use
  Company Number: PHHY2012AU008851

PATIENT
  Sex: Male

DRUGS (2)
  1. LENALIDOMIDE [Suspect]
  2. ZOMETA [Suspect]
     Dosage: 4 MG, QMO
     Route: 042
     Dates: start: 20030101

REACTIONS (9)
  - OSTEONECROSIS OF JAW [None]
  - EXPOSED BONE IN JAW [None]
  - PARAESTHESIA [None]
  - BONE LOSS [None]
  - PAIN IN JAW [None]
  - HYPERCALCAEMIA [None]
  - NEOPLASM PROGRESSION [None]
  - MYELOMA RECURRENCE [None]
  - BONE LESION [None]
